FAERS Safety Report 14149235 (Version 1)
Quarter: 2017Q4

REPORT INFORMATION
  Report Type: Spontaneous
  Country: GB (occurrence: GB)
  Receive Date: 20171101
  Receipt Date: 20171101
  Transmission Date: 20180321
  Serious: Yes (Death, Other)
  Sender: FDA-Public Use
  Company Number: GB-TEVA-820043ACC

PATIENT
  Age: 45 Year
  Sex: Male

DRUGS (1)
  1. TEVA UK OLANZAPINE [Suspect]
     Active Substance: OLANZAPINE

REACTIONS (2)
  - Thrombosis [Not Recovered/Not Resolved]
  - Left ventricular failure [Fatal]
